FAERS Safety Report 13976960 (Version 1)
Quarter: 2017Q3

REPORT INFORMATION
  Report Type: Spontaneous
  Country: US (occurrence: US)
  Receive Date: 20170915
  Receipt Date: 20170915
  Transmission Date: 20171128
  Serious: No
  Sender: FDA-Public Use
  Company Number: US-LPDUSPRD-20170721

PATIENT
  Sex: Female

DRUGS (1)
  1. INJECTAFER [Suspect]
     Active Substance: FERRIC CARBOXYMALTOSE
     Dosage: DOSE NOT PROVIDED
     Route: 042
     Dates: start: 20170120, end: 20170120

REACTIONS (5)
  - Pallor [Unknown]
  - Hypotension [Unknown]
  - Headache [Unknown]
  - Tremor [Unknown]
  - Presyncope [Unknown]

NARRATIVE: CASE EVENT DATE: 20170120
